FAERS Safety Report 5318924-X (Version None)
Quarter: 2007Q2

REPORT INFORMATION
  Report Type: 
  Country: None (occurrence: None)
  Receive Date: 20070503
  Receipt Date: 20070417
  Transmission Date: 20071010
  Serious: Yes (Death, Congenital Anomaly)
  Sender: FDA-Public Use
  Company Number: 8008136

PATIENT
  Sex: Male

DRUGS (4)
  1. KEPPRA [Suspect]
     Indication: EPILEPSY
     Dosage: 500 MG 2/D TRP
     Route: 064
     Dates: start: 20031203, end: 20040430
  2. KEPPRA [Suspect]
     Indication: EPILEPSY
     Dosage: 500 MG 2/W TRP
     Route: 064
     Dates: start: 20040430, end: 20040723
  3. KEPPRA [Suspect]
     Indication: EPILEPSY
     Dosage: 40 MG TRP
     Route: 064
     Dates: start: 20031203, end: 20040430
  4. KEPPRA [Suspect]
     Indication: EPILEPSY
     Dosage: NI 2/W TRP
     Route: 064
     Dates: start: 20040430, end: 20040723

REACTIONS (6)
  - CONGENITAL DIAPHRAGMATIC ANOMALY [None]
  - DIAPHRAGMATIC APLASIA [None]
  - DIAPHRAGMATIC HERNIA [None]
  - DRUG EXPOSURE DURING PREGNANCY [None]
  - NEONATAL RESPIRATORY DISTRESS SYNDROME [None]
  - PULMONARY HYPOPLASIA [None]
